FAERS Safety Report 9688676 (Version 2)
Quarter: 2013Q4

REPORT INFORMATION
  Report Type: Spontaneous
  Country: GB (occurrence: None)
  Receive Date: 20131112
  Receipt Date: 20131119
  Transmission Date: 20140711
  Serious: Yes (Life-Threatening, Hospitalization)
  Sender: FDA-Public Use
  Company Number: AUR-APL-2013-09328

PATIENT
  Age: 48 Year
  Sex: Female

DRUGS (5)
  1. PERINDOPRIL [Suspect]
     Indication: PRODUCT USED FOR UNKNOWN INDICATION
     Route: 048
  2. LANSOPRAZOLE [Suspect]
     Indication: PRODUCT USED FOR UNKNOWN INDICATION
     Route: 048
  3. FLUOXETINE (FLUOXETINE ) [Concomitant]
  4. WARFARIN (WARFARIN) [Concomitant]
  5. ATENOLOL (ATENOLOL) [Concomitant]

REACTIONS (3)
  - Hypomagnesaemia [None]
  - Hypocalcaemia [None]
  - Hypokalaemia [None]
